FAERS Safety Report 6438377-8 (Version None)
Quarter: 2009Q4

REPORT INFORMATION
  Report Type: 
  Country: None (occurrence: None)
  Receive Date: 20091112
  Receipt Date: 20091105
  Transmission Date: 20100525
  Serious: Yes (Other)
  Sender: FDA-Public Use
  Company Number: US-ABBOTT-09P-163-0606839-00

PATIENT
  Sex: Female
  Weight: 54.934 kg

DRUGS (3)
  1. SYNTHROID [Suspect]
     Indication: HYPOTHYROIDISM
     Dates: start: 19740101
  2. ANTIHYPERTENSIVES [Concomitant]
     Indication: HYPERTENSION
  3. LIPITOR [Concomitant]
     Indication: BLOOD CHOLESTEROL INCREASED

REACTIONS (6)
  - ABDOMINAL PAIN [None]
  - ASCITES [None]
  - CARCINOID TUMOUR OF THE APPENDIX [None]
  - DYSPHAGIA [None]
  - HEART RATE DECREASED [None]
  - NAUSEA [None]
